FAERS Safety Report 13856345 (Version 1)
Quarter: 2017Q3

REPORT INFORMATION
  Report Type: Spontaneous
  Country: US (occurrence: US)
  Receive Date: 20170810
  Receipt Date: 20170810
  Transmission Date: 20171127
  Serious: Yes (Hospitalization, Other)
  Sender: FDA-Public Use
  Company Number: US-HERITAGE PHARMACEUTICALS-2017HTG00205

PATIENT
  Age: 56 Year
  Sex: Female

DRUGS (1)
  1. METHIMAZOLE. [Suspect]
     Active Substance: METHIMAZOLE
     Indication: BASEDOW^S DISEASE
     Route: 065

REACTIONS (4)
  - Cholestasis [Recovered/Resolved]
  - Renal tubular necrosis [Recovered/Resolved]
  - Nephropathy [Recovered/Resolved]
  - Drug-induced liver injury [Recovered/Resolved]
